FAERS Safety Report 5894990-8 (Version None)
Quarter: 2008Q3

REPORT INFORMATION
  Report Type: 
  Country: None (occurrence: None)
  Receive Date: 20080924
  Receipt Date: 20080911
  Transmission Date: 20090109
  Serious: Yes (Other)
  Sender: FDA-Public Use
  Company Number: US-PFIZER INC-2008063155

PATIENT
  Sex: Male
  Weight: 112 kg

DRUGS (2)
  1. CHANTIX [Suspect]
     Indication: SMOKING CESSATION THERAPY
     Dates: start: 20080501, end: 20080712
  2. AVALIDE [Concomitant]
     Indication: HYPERTENSION

REACTIONS (9)
  - CERUMEN IMPACTION [None]
  - GAIT DISTURBANCE [None]
  - GUILLAIN-BARRE SYNDROME [None]
  - ILL-DEFINED DISORDER [None]
  - NASAL MUCOSAL DISORDER [None]
  - PHARYNGEAL DISORDER [None]
  - THROMBOCYTOPENIA [None]
  - TYMPANIC MEMBRANE DISORDER [None]
  - VITAMIN B12 DECREASED [None]
